FAERS Safety Report 7990808-8 (Version None)
Quarter: 2011Q4

REPORT INFORMATION
  Report Type: 
  Country: None (occurrence: None)
  Receive Date: 20111219
  Receipt Date: 20111208
  Transmission Date: 20120403
  Serious: Yes (Hospitalization, Other)
  Sender: FDA-Public Use
  Company Number: US-BAYER-2011-040886

PATIENT
  Age: 33 Year
  Sex: Female
  Weight: 74.83 kg

DRUGS (16)
  1. IMITREX [Concomitant]
     Indication: MIGRAINE
     Dosage: UNK
     Dates: start: 20060101
  2. AMITRIPTYLINE HCL [Concomitant]
     Indication: DEPRESSION
     Dosage: 50 MG, HS
     Route: 048
     Dates: start: 20060306
  3. YAZ [Suspect]
  4. SINGULAIR [Concomitant]
     Dosage: UNK
     Dates: start: 20060306
  5. YAZ [Suspect]
     Indication: PREMENSTRUAL SYNDROME
     Dosage: UNK
     Dates: start: 20040101, end: 20110101
  6. TREXIMET [Concomitant]
     Indication: MIGRAINE
     Dosage: UNK
     Dates: start: 20060101
  7. NEXIUM [Concomitant]
     Dosage: UNK
     Dates: start: 20060306
  8. XANAX [Concomitant]
     Dosage: 0.5 MG, BID
     Dates: start: 20060306
  9. DEMEROL [Concomitant]
     Dosage: 50 MG, PRN
     Route: 048
     Dates: start: 20060306
  10. PROMETHAZINE [Concomitant]
     Indication: MULTIPLE ALLERGIES
     Dosage: UNK
     Dates: start: 20060101
  11. VALIUM [Concomitant]
     Indication: ANXIETY
     Dosage: UNK
     Dates: start: 20060101
  12. ZOLOFT [Concomitant]
     Indication: DEPRESSION
     Dosage: UNK
     Dates: start: 20060101
  13. PROVENTIL [Concomitant]
     Indication: ASTHMA
     Dosage: UNK
     Dates: start: 20060101
  14. ZANAFLEX [Concomitant]
     Indication: MUSCLE SPASMS
  15. TIGAN [Concomitant]
     Dosage: 300 MG, PRN
     Route: 048
     Dates: start: 20060306
  16. LEVSIN [Concomitant]
     Dosage: 0.125 MG, PRN
     Dates: start: 20060313

REACTIONS (7)
  - PAIN [None]
  - CHOLECYSTITIS CHRONIC [None]
  - CHOLELITHIASIS [None]
  - INJURY [None]
  - ABDOMINAL PAIN [None]
  - EMOTIONAL DISTRESS [None]
  - ANXIETY [None]
